FAERS Safety Report 7009268-9 (Version None)
Quarter: 2010Q3

REPORT INFORMATION
  Report Type: 
  Country: None (occurrence: None)
  Receive Date: 20100923
  Receipt Date: 20100921
  Transmission Date: 20110219
  Serious: Yes (Hospitalization)
  Sender: FDA-Public Use
  Company Number: JP-BRISTOL-MYERS SQUIBB COMPANY-15296619

PATIENT
  Age: 46 Year
  Weight: 57 kg

DRUGS (2)
  1. CISPLATIN [Suspect]
     Indication: CERVIX CARCINOMA
     Dosage: 73.5MG;CYCLE 7;RESTARTED:25AUG2010.
     Route: 042
     Dates: start: 20100412
  2. S-1 [Suspect]
     Indication: CERVIX CARCINOMA
     Dosage: 100MG;CYCLE7;THERAPY DATES:12APR10-25APR10,25AUG10-05SEP10
     Route: 048
     Dates: start: 20100412, end: 20100905

REACTIONS (1)
  - HYDRONEPHROSIS [None]
